FAERS Safety Report 13276426 (Version 1)
Quarter: 2017Q1

REPORT INFORMATION
  Report Type: Spontaneous
  Country: NL (occurrence: NL)
  Receive Date: 20170228
  Receipt Date: 20170228
  Transmission Date: 20170428
  Serious: Yes (Hospitalization)
  Sender: FDA-Public Use
  Company Number: NL-TEVA-743659ACC

PATIENT
  Age: 51 Year
  Sex: Male

DRUGS (1)
  1. VINCRISTINE INJECTIE/INFUUS [Suspect]
     Active Substance: VINCRISTINE SULFATE
     Indication: HODGKIN^S DISEASE
     Dosage: 1 TIME PER WEEK 1 PIECE
     Route: 042
     Dates: start: 2016

REACTIONS (1)
  - Gastrointestinal ulcer [Recovered/Resolved]

NARRATIVE: CASE EVENT DATE: 201605
